FAERS Safety Report 8916091 (Version 2)
Quarter: 2012Q4

REPORT INFORMATION
  Report Type: 
  Country: US (occurrence: US)
  Receive Date: 20121119
  Receipt Date: 20121207
  Transmission Date: 20130627
  Serious: No
  Sender: FDA-Public Use
  Company Number: US-009507513-1210USA004032

PATIENT
  Age: 54 None
  Sex: Female
  Weight: 77.98 kg

DRUGS (9)
  1. CLARITIN LIQUIGELS [Suspect]
     Indication: NASAL CONGESTION
     Dosage: 10 mg, qd
     Route: 048
     Dates: start: 201208, end: 20120908
  2. CLARITIN LIQUIGELS [Suspect]
     Indication: SNEEZING
  3. CLARITIN LIQUIGELS [Suspect]
     Indication: FATIGUE
  4. CLARITIN LIQUIGELS [Suspect]
     Indication: THROAT IRRITATION
  5. CLARITIN LIQUIGELS [Suspect]
     Indication: MEDICAL OBSERVATION
  6. SIMVASTATIN [Concomitant]
     Indication: BLOOD CHOLESTEROL INCREASED
     Dosage: UNK, Unknown
  7. CELEXA [Concomitant]
     Indication: DEPRESSION
     Dosage: UNK, Unknown
  8. SYNTHROID [Concomitant]
     Indication: HYPOTHYROIDISM
     Dosage: UNK, Unknown
  9. TYLENOL [Concomitant]
     Indication: HEADACHE
     Dosage: UNK, Unknown

REACTIONS (2)
  - Dizziness [Recovered/Resolved]
  - Drug ineffective [Unknown]
